FAERS Safety Report 7928937-7 (Version None)
Quarter: 2011Q4

REPORT INFORMATION
  Report Type: 
  Country: None (occurrence: None)
  Receive Date: 20111118
  Receipt Date: 20111117
  Transmission Date: 20120403
  Serious: Yes (Other)
  Sender: FDA-Public Use
  Company Number: US-AMGEN-USASP2011020400

PATIENT
  Age: 83 Year
  Sex: Female
  Weight: 75.283 kg

DRUGS (4)
  1. NPLATE [Suspect]
     Indication: THROMBOCYTOPENIA
     Dosage: UNK
     Dates: start: 20110131
  2. CORTICOSTEROIDS [Concomitant]
     Dosage: UNK
     Dates: start: 20110116
  3. DOCUSATE SODIUM [Concomitant]
     Dosage: 100 MG, TID
     Route: 048
  4. FENTANYL-100 [Concomitant]
     Dosage: 100 MU, QH
     Route: 062

REACTIONS (1)
  - THROMBOCYTOPENIC PURPURA [None]
